FAERS Safety Report 17967792 (Version 1)
Quarter: 2020Q2

REPORT INFORMATION
  Report Type: Spontaneous
  Country: US (occurrence: US)
  Receive Date: 20200630
  Receipt Date: 20200630
  Transmission Date: 20200714
  Serious: Yes (Hospitalization)
  Sender: FDA-Public Use
  Company Number: None

PATIENT
  Age: 28 Year
  Sex: Male

DRUGS (9)
  1. TRIMETHOBENZINE [Concomitant]
  2. CEFDINIR. [Concomitant]
     Active Substance: CEFDINIR
  3. AMOX/K CLAV [Concomitant]
     Active Substance: AMOXICILLIN\CLAVULANATE POTASSIUM
  4. ONDANSETRON [Concomitant]
     Active Substance: ONDANSETRON
  5. SEVELAMER [Concomitant]
     Active Substance: SEVELAMER
  6. CALCITROL [Concomitant]
  7. HYDROXYZ PAM [Concomitant]
     Active Substance: HYDROXYZINE PAMOATE
  8. PROMACTA [Suspect]
     Active Substance: ELTROMBOPAG OLAMINE
     Indication: BLOOD DISORDER
     Route: 048
     Dates: start: 20200325
  9. VANCOMYCIN [Concomitant]
     Active Substance: VANCOMYCIN

REACTIONS (1)
  - Renal cancer [None]

NARRATIVE: CASE EVENT DATE: 20200601
